FAERS Safety Report 7898795-8 (Version None)
Quarter: 2011Q4

REPORT INFORMATION
  Report Type: 
  Country: None (occurrence: None)
  Receive Date: 20111107
  Receipt Date: 20110922
  Transmission Date: 20120403
  Serious: No
  Sender: FDA-Public Use
  Company Number: US-ABBOTT-11P-163-0858079-00

PATIENT
  Sex: Female
  Weight: 84.444 kg

DRUGS (9)
  1. ZANTAC [Concomitant]
     Indication: GASTROOESOPHAGEAL REFLUX DISEASE
  2. VITAMIN D [Concomitant]
     Indication: VITAMIN D DEFICIENCY
  3. ULTRACET [Concomitant]
     Indication: PAIN
  4. EFFEXOR [Concomitant]
     Indication: DEPRESSION
  5. EFFEXOR [Concomitant]
     Indication: ANXIETY
  6. LYRICA [Concomitant]
     Indication: FIBROMYALGIA
  7. MAXZIDE [Concomitant]
     Indication: HYPERTENSION
  8. COLACE [Concomitant]
     Indication: CONSTIPATION PROPHYLAXIS
  9. TRICOR [Suspect]
     Indication: BLOOD CHOLESTEROL INCREASED
     Dates: start: 20110601, end: 20110901

REACTIONS (1)
  - HYPERHIDROSIS [None]
